FAERS Safety Report 8539430-5 (Version None)
Quarter: 2012Q3

REPORT INFORMATION
  Report Type: 
  Country: None (occurrence: None)
  Receive Date: 20120726
  Receipt Date: 20120720
  Transmission Date: 20120928
  Serious: No
  Sender: FDA-Public Use
  Company Number: US-BAYER-2012-074336

PATIENT
  Age: 75 Year
  Sex: Male

DRUGS (3)
  1. PREDNISONE [Concomitant]
     Indication: PREMEDICATION
     Dosage: 150 MG, UNK
  2. BENADRYL [Concomitant]
     Indication: PREMEDICATION
     Dosage: 50 MG, UNK
  3. ULTRAVIST 150 [Suspect]
     Indication: ANGIOGRAM
     Dosage: UNK
     Dates: start: 20120720

REACTIONS (1)
  - URTICARIA [None]
